FAERS Safety Report 6398718-7 (Version None)
Quarter: 2009Q4

REPORT INFORMATION
  Report Type: 
  Country: None (occurrence: None)
  Receive Date: 20091013
  Receipt Date: 20090925
  Transmission Date: 20100525
  Serious: Yes (Hospitalization)
  Sender: FDA-Public Use
  Company Number: PHHY2009JP26918

PATIENT
  Age: 30 Year
  Sex: Male
  Weight: 65.6 kg

DRUGS (15)
  1. SANDIMMUNE [Suspect]
     Indication: APLASTIC ANAEMIA
     Dosage: UNK
     Route: 042
     Dates: start: 19971101, end: 20070401
  2. SANDIMMUNE [Suspect]
     Dosage: UNK
     Route: 042
     Dates: start: 20070701, end: 20070801
  3. NEORAL [Suspect]
     Indication: APLASTIC ANAEMIA
     Dosage: UNK
     Route: 048
     Dates: start: 20070405, end: 20070601
  4. PRIMOBOLAN [Suspect]
     Indication: APLASTIC ANAEMIA
     Dosage: UNK
     Dates: start: 20020101, end: 20070801
  5. METHYLPREDNISOLONE [Concomitant]
     Indication: APLASTIC ANAEMIA
  6. ANTILYMPHOCYTE IMMUNOGLOBULIN (HORSE) [Concomitant]
     Indication: APLASTIC ANAEMIA
     Dosage: UNK
  7. NEUPOGEN [Concomitant]
     Indication: FEBRILE NEUTROPENIA
  8. NEUPOGEN [Concomitant]
     Indication: APLASTIC ANAEMIA
  9. FLUDARABINE [Concomitant]
     Indication: UNRELATED DONOR BONE MARROW TRANSPLANTATION THERAPY
     Dosage: 30 MG/M2 DAILY
  10. CYCLOPHOSPHAMIDE [Concomitant]
     Indication: UNRELATED DONOR BONE MARROW TRANSPLANTATION THERAPY
     Dosage: 60 MG/KG/DAY
  11. TACROLIMUS [Concomitant]
     Indication: PROPHYLAXIS AGAINST GRAFT VERSUS HOST DISEASE
  12. TACROLIMUS [Concomitant]
     Indication: BONE MARROW TRANSPLANT
  13. METHOTREXATE [Concomitant]
     Indication: PROPHYLAXIS AGAINST GRAFT VERSUS HOST DISEASE
     Dosage: UNK
  14. METHOTREXATE [Concomitant]
     Indication: BONE MARROW TRANSPLANT
  15. ANTIBIOTICS [Concomitant]

REACTIONS (5)
  - BILE DUCT STONE [None]
  - BILIARY DRAINAGE [None]
  - BILIARY SPHINCTEROTOMY [None]
  - CHOLANGITIS SUPPURATIVE [None]
  - CHOLELITHIASIS [None]
